FAERS Safety Report 9289523 (Version 2)
Quarter: 2013Q2

REPORT INFORMATION
  Report Type: Report from Study
  Country: GB (occurrence: GB)
  Receive Date: 20130515
  Receipt Date: 20130605
  Transmission Date: 20140414
  Serious: Yes (Death)
  Sender: FDA-Public Use
  Company Number: GB-ROCHE-CID000000002418666

PATIENT
  Sex: Female
  Weight: 65 kg

DRUGS (1)
  1. RITUXIMAB [Suspect]
     Indication: PRODUCT USED FOR UNKNOWN INDICATION
     Dosage: LAST DOSE PRIOR TO EVENT ON 15/JAN/2012.
     Route: 065
     Dates: start: 20080131

REACTIONS (1)
  - Hypertensive heart disease [Fatal]
